FAERS Safety Report 5599152-X (Version None)
Quarter: 2008Q1

REPORT INFORMATION
  Report Type: 
  Country: None (occurrence: None)
  Receive Date: 20080117
  Receipt Date: 20080103
  Transmission Date: 20080703
  Serious: Yes (Death, Other)
  Sender: FDA-Public Use
  Company Number: MC200700755

PATIENT
  Age: 72 Year
  Sex: Female

DRUGS (4)
  1. ANGIOMAX [Suspect]
     Indication: PERCUTANEOUS CORONARY INTERVENTION
     Dosage: BOLUS, IV BOLUS; INTRAVENOUS
     Dates: start: 20071218, end: 20071218
  2. ANGIOMAX [Suspect]
     Indication: PERCUTANEOUS CORONARY INTERVENTION
     Dosage: BOLUS, IV BOLUS; INTRAVENOUS
     Dates: start: 20071218
  3. ASPIRIN [Suspect]
  4. PLAVIX [Suspect]

REACTIONS (6)
  - BLOOD PRESSURE INCREASED [None]
  - CEREBELLAR HAEMORRHAGE [None]
  - HEADACHE [None]
  - MENTAL STATUS CHANGES [None]
  - PROCEDURAL COMPLICATION [None]
  - SUBARACHNOID HAEMORRHAGE [None]
